FAERS Safety Report 8328092-8 (Version None)
Quarter: 2012Q2

REPORT INFORMATION
  Report Type: 
  Country: None (occurrence: None)
  Receive Date: 20120502
  Receipt Date: 20120424
  Transmission Date: 20120825
  Serious: Yes (Hospitalization, Other)
  Sender: FDA-Public Use
  Company Number: PHEH2012US001748

PATIENT
  Sex: Male
  Weight: 12.6 kg

DRUGS (6)
  1. EXJADE [Suspect]
     Indication: APLASTIC ANAEMIA
     Dosage: 250 MG, DAILY
     Dates: start: 20111202
  2. POLY-VI-SOL [Concomitant]
     Dosage: 1 ML, DAILY
     Route: 048
  3. VITAMIN D [Concomitant]
     Dosage: 1000 U, DAILY
     Route: 048
  4. VITAMIN C [Concomitant]
     Dosage: 120 MG, DAILY
     Route: 048
  5. OMEPRAZOLE [Concomitant]
     Indication: REFLUX GASTRITIS
     Dosage: 10 MG, BID
     Route: 048
  6. EXJADE [Suspect]
     Indication: ANAEMIA NEONATAL
     Dosage: 250 MG, DAILY
     Route: 048
     Dates: start: 20090914, end: 20110922

REACTIONS (7)
  - PAIN IN EXTREMITY [None]
  - THROMBOCYTOPENIA [None]
  - NEUTROPENIA [None]
  - STAPHYLOCOCCAL ABSCESS [None]
  - OEDEMA PERIPHERAL [None]
  - PYREXIA [None]
  - LEUKOPENIA [None]
